FAERS Safety Report 6453649-9 (Version None)
Quarter: 2009Q4

REPORT INFORMATION
  Report Type: 
  Country: None (occurrence: None)
  Receive Date: 20091124
  Receipt Date: 20091112
  Transmission Date: 20100525
  Serious: Yes (Other)
  Sender: FDA-Public Use
  Company Number: PHHY2009JP50616

PATIENT
  Age: 23 Year
  Sex: Female

DRUGS (1)
  1. DIOVAN [Suspect]
     Indication: HYPERTENSION
     Dosage: INTENTIONALLY TOOK 10 TABLETS OF DIOVAN 80MG
     Route: 048
     Dates: start: 20091112, end: 20091112

REACTIONS (2)
  - HYPOTENSION [None]
  - INTENTIONAL OVERDOSE [None]
